FAERS Safety Report 9695027 (Version 1)
Quarter: 2013Q4

REPORT INFORMATION
  Report Type: Spontaneous
  Country: US (occurrence: US)
  Receive Date: 20131119
  Receipt Date: 20131119
  Transmission Date: 20140711
  Serious: No
  Sender: FDA-Public Use
  Company Number: US-009507513-1311USA006094

PATIENT
  Age: 44 Year
  Sex: Female

DRUGS (3)
  1. IMPLANON [Suspect]
     Indication: CONTRACEPTION
     Dosage: UNK
     Route: 059
     Dates: start: 20121120
  2. HYDROCHLOROTHIAZIDE [Concomitant]
  3. CLOZARIL [Concomitant]

REACTIONS (1)
  - Menstruation delayed [Unknown]
